FAERS Safety Report 7273557-3 (Version None)
Quarter: 2011Q1

REPORT INFORMATION
  Report Type: 
  Country: None (occurrence: None)
  Receive Date: 20110203
  Receipt Date: 20101027
  Transmission Date: 20110831
  Serious: No
  Sender: FDA-Public Use
  Company Number: US-ABBOTT-10P-163-0673502-00

PATIENT
  Sex: Male

DRUGS (3)
  1. SYNTHROID [Suspect]
     Dates: start: 20100901
  2. SYNTHROID [Suspect]
     Indication: CONGENITAL HYPOTHYROIDISM
     Dates: start: 20100601, end: 20100901
  3. SYNTHROID [Suspect]
     Indication: CONGENITAL HYPOTHYROIDISM
     Dates: start: 20080101, end: 20100601

REACTIONS (2)
  - ENERGY INCREASED [None]
  - DYSKINESIA [None]
